FAERS Safety Report 11463344 (Version 1)
Quarter: 2015Q3

REPORT INFORMATION
  Report Type: Spontaneous
  Country: US (occurrence: US)
  Receive Date: 20150831
  Receipt Date: 20150831
  Transmission Date: 20151125
  Serious: No
  Sender: FDA-Public Use
  Company Number: US-ELI_LILLY_AND_COMPANY-US201101006969

PATIENT
  Age: 42 Year
  Sex: Male

DRUGS (2)
  1. CYMBALTA [Suspect]
     Active Substance: DULOXETINE HYDROCHLORIDE
     Dosage: 60 MG, DAILY (1/D)
     Dates: start: 201008
  2. CYMBALTA [Suspect]
     Active Substance: DULOXETINE HYDROCHLORIDE
     Indication: DEPRESSION
     Dosage: UNK, UNK
     Dates: start: 2009

REACTIONS (8)
  - Fatigue [Recovered/Resolved]
  - Nasopharyngitis [Not Recovered/Not Resolved]
  - Feeling abnormal [Recovered/Resolved]
  - Drug withdrawal syndrome [Recovered/Resolved]
  - Insomnia [Recovered/Resolved]
  - Abnormal dreams [Recovered/Resolved]
  - Paraesthesia [Recovered/Resolved]
  - Anorgasmia [Not Recovered/Not Resolved]
